FAERS Safety Report 16599011 (Version 1)
Quarter: 2019Q3

REPORT INFORMATION
  Report Type: Spontaneous
  Country: US (occurrence: US)
  Receive Date: 20190719
  Receipt Date: 20190719
  Transmission Date: 20191004
  Serious: No
  Sender: FDA-Public Use
  Company Number: US-SA-2019SA193716

PATIENT
  Sex: Female

DRUGS (11)
  1. CLONAZEPAM. [Concomitant]
     Active Substance: CLONAZEPAM
  2. OXYCODONE [Concomitant]
     Active Substance: OXYCODONE
  3. AUBAGIO [Suspect]
     Active Substance: TERIFLUNOMIDE
     Dosage: 14 MG, QD
     Route: 048
  4. OMEPRAZOLE. [Concomitant]
     Active Substance: OMEPRAZOLE
  5. VENLAFAXINE [Concomitant]
     Active Substance: VENLAFAXINE HYDROCHLORIDE
  6. AVONEX [Concomitant]
     Active Substance: INTERFERON BETA-1A
  7. LISINOPRIL. [Concomitant]
     Active Substance: LISINOPRIL
  8. SUCRALFATE. [Concomitant]
     Active Substance: SUCRALFATE
  9. BACLOFEN. [Concomitant]
     Active Substance: BACLOFEN
  10. METFORMIN HCL [Concomitant]
     Active Substance: METFORMIN HYDROCHLORIDE
  11. MYRBETRIQ [Concomitant]
     Active Substance: MIRABEGRON

REACTIONS (1)
  - Product dose omission [Not Recovered/Not Resolved]
